FAERS Safety Report 7085168-3 (Version None)
Quarter: 2010Q4

REPORT INFORMATION
  Report Type: 
  Country: None (occurrence: None)
  Receive Date: 20101028
  Receipt Date: 20101021
  Transmission Date: 20110411
  Serious: Yes (Other)
  Sender: FDA-Public Use
  Company Number: 2010SP056641

PATIENT

DRUGS (2)
  1. NOXAFIL [Suspect]
     Indication: PRODUCT USED FOR UNKNOWN INDICATION
  2. GLEEVEC [Suspect]
     Indication: PRODUCT USED FOR UNKNOWN INDICATION

REACTIONS (1)
  - GLAUCOMA [None]
